FAERS Safety Report 25089138 (Version 1)
Quarter: 2025Q1

REPORT INFORMATION
  Report Type: Spontaneous
  Country: US (occurrence: None)
  Receive Date: 20250316
  Receipt Date: 20250316
  Transmission Date: 20250409
  Serious: Yes (Life-Threatening, Hospitalization)
  Sender: FDA-CTU
  Company Number: None

PATIENT
  Age: 56 Year
  Sex: Female
  Weight: 99.9 kg

DRUGS (4)
  1. MELOXICAM [Suspect]
     Active Substance: MELOXICAM
     Indication: Arthritis
     Dosage: 30 TABLETS DAILY ORAL ?
     Route: 048
     Dates: start: 20241009, end: 20241010
  2. Albuterol rescue inhaler [Concomitant]
  3. Albuterol nebulizer vials [Concomitant]
  4. VITAMIN D [Concomitant]
     Active Substance: VITAMIN D NOS

REACTIONS (10)
  - Chest pain [None]
  - Chest discomfort [None]
  - Therapy cessation [None]
  - Blood pressure increased [None]
  - Flushing [None]
  - Troponin increased [None]
  - Uveitis [None]
  - Corneal erosion [None]
  - Swelling [None]
  - Pelvic pain [None]

NARRATIVE: CASE EVENT DATE: 20241009
